FAERS Safety Report 4825513-X (Version None)
Quarter: 2005Q4

REPORT INFORMATION
  Report Type: 
  Country: None (occurrence: None)
  Receive Date: 20051111
  Receipt Date: 20040629
  Transmission Date: 20060501
  Serious: No
  Sender: FDA-Public Use
  Company Number: US-GLAXOSMITHKLINE-A0516425A

PATIENT
  Age: 75 Year
  Sex: Male

DRUGS (4)
  1. AVODART [Suspect]
     Indication: BENIGN PROSTATIC HYPERPLASIA
     Dosage: .5MG PER DAY
     Route: 048
     Dates: start: 20040503
  2. AVODART [Suspect]
     Dosage: 1CAP PER DAY
     Route: 048
     Dates: start: 20050701
  3. LIPITOR [Concomitant]
  4. CARDURA [Concomitant]

REACTIONS (3)
  - MICTURITION URGENCY [None]
  - POLLAKIURIA [None]
  - URINARY TRACT DISORDER [None]
